FAERS Safety Report 4725562-6 (Version None)
Quarter: 2005Q3

REPORT INFORMATION
  Report Type: 
  Country: None (occurrence: None)
  Receive Date: 20050725
  Receipt Date: 20050715
  Transmission Date: 20060218
  Serious: Yes (Hospitalization, Other)
  Sender: FDA-Public Use
  Company Number: KII-2005-0017611

PATIENT
  Age: 47 Year
  Sex: Male

DRUGS (6)
  1. MORPHINE SULFATE [Suspect]
     Dosage: ORAL
     Route: 048
  2. INSULIN [Suspect]
  3. AMITRIPTYLINE HCL [Suspect]
     Dosage: ORAL
     Route: 048
  4. SSRI () [Suspect]
     Dosage: 150 MG, ORAL
     Route: 048
  5. ANTIPSYCHOTICS () [Suspect]
     Dosage: ORAL
     Route: 048
  6. TETRAHYDROCANNABINOL (TETRAHYDROCANNABINOL) [Suspect]

REACTIONS (11)
  - AGITATION [None]
  - CLONUS [None]
  - CONFUSIONAL STATE [None]
  - DRUG ABUSER [None]
  - DRUG SCREEN POSITIVE [None]
  - HYPERHIDROSIS [None]
  - HYPOGLYCAEMIA [None]
  - INTENTIONAL MISUSE [None]
  - OVERDOSE [None]
  - TACHYCARDIA [None]
  - TREMOR [None]
